FAERS Safety Report 9683528 (Version 1)
Quarter: 2013Q4

REPORT INFORMATION
  Report Type: Spontaneous
  Country: CH (occurrence: CH)
  Receive Date: 20131112
  Receipt Date: 20131112
  Transmission Date: 20140711
  Serious: Yes (Hospitalization)
  Sender: FDA-Public Use
  Company Number: PHHY2013CH125822

PATIENT
  Age: 45 Year
  Sex: Female

DRUGS (3)
  1. MEPROBAMATE [Suspect]
  2. DULOXETINE [Suspect]
  3. PRAZEPAM [Suspect]

REACTIONS (16)
  - Serotonin syndrome [Recovered/Resolved]
  - Depressed level of consciousness [Recovered/Resolved]
  - Pallor [Recovered/Resolved]
  - Hyporeflexia [Recovered/Resolved]
  - Respiratory acidosis [Recovered/Resolved]
  - Circulatory collapse [Recovered/Resolved]
  - Respiratory failure [Recovered/Resolved]
  - Feeling cold [Recovered/Resolved]
  - Hypotension [Recovered/Resolved]
  - Toxicity to various agents [Recovered/Resolved]
  - Lethargy [Recovered/Resolved]
  - Confusional state [Recovered/Resolved]
  - Mental status changes [Recovered/Resolved]
  - Unresponsive to stimuli [Recovered/Resolved]
  - Suicide attempt [Recovered/Resolved]
  - Intentional overdose [Recovered/Resolved]
